FAERS Safety Report 9604267 (Version 1)
Quarter: 2013Q4

REPORT INFORMATION
  Report Type: Spontaneous
  Country: CA (occurrence: CA)
  Receive Date: 20131008
  Receipt Date: 20131008
  Transmission Date: 20140711
  Serious: Yes (Other)
  Sender: FDA-Public Use
  Company Number: PHHY2013CA111574

PATIENT
  Age: 76 Year
  Sex: Female

DRUGS (4)
  1. ZOMETA [Suspect]
     Dosage: 4 MG,EVERY 4 WEEKS.
     Route: 042
  2. TARCEVA [Suspect]
     Dosage: UNK
     Route: 048
  3. PREDNISONE [Concomitant]
     Dosage: UNK UKN, UNK
  4. ANTINEOPLASTIC AGENTS [Concomitant]
     Dosage: UNK UKN, UNK

REACTIONS (9)
  - Lower respiratory tract infection [Unknown]
  - Breath sounds abnormal [Unknown]
  - Cough [Unknown]
  - Back pain [Unknown]
  - Blood pressure increased [Unknown]
  - Diarrhoea [Unknown]
  - Nausea [Unknown]
  - Pruritus [Unknown]
  - Rash erythematous [Unknown]
